FAERS Safety Report 5790914-2 (Version None)
Quarter: 2008Q2

REPORT INFORMATION
  Report Type: 
  Country: None (occurrence: None)
  Receive Date: 20080626
  Receipt Date: 20080509
  Transmission Date: 20081010
  Serious: No
  Sender: FDA-Public Use
  Company Number: A0727219A

PATIENT
  Sex: Female

DRUGS (1)
  1. ALLI [Suspect]
     Indication: DRUG USE FOR UNKNOWN INDICATION

REACTIONS (6)
  - ARTHRALGIA [None]
  - DENTAL PROSTHESIS USER [None]
  - GINGIVAL SWELLING [None]
  - ORAL PAIN [None]
  - ORAL SURGERY [None]
  - PAIN IN EXTREMITY [None]
